FAERS Safety Report 10062866 (Version 1)
Quarter: 2014Q2

REPORT INFORMATION
  Report Type: Spontaneous
  Country: DK (occurrence: DK)
  Receive Date: 20140407
  Receipt Date: 20140407
  Transmission Date: 20141212
  Serious: Yes (Other)
  Sender: FDA-Public Use
  Company Number: DK-WATSON-2014-06326

PATIENT
  Age: 32 Year
  Sex: Female
  Weight: 71 kg

DRUGS (2)
  1. LYMECYCLIN ACTAVIS [Suspect]
     Indication: PELVIC INFLAMMATORY DISEASE
     Dosage: 300 MG, BID
     Route: 048
     Dates: start: 20140202, end: 20140210
  2. METRONIDAZOL ACTAVIS [Suspect]
     Indication: PELVIC INFLAMMATORY DISEASE
     Dosage: 500 MG, BID
     Route: 048
     Dates: start: 20140202, end: 20140210

REACTIONS (8)
  - Fungal oesophagitis [Not Recovered/Not Resolved]
  - Urticaria [Not Recovered/Not Resolved]
  - Skin burning sensation [Not Recovered/Not Resolved]
  - Rash [Not Recovered/Not Resolved]
  - Dizziness [Not Recovered/Not Resolved]
  - Gastrooesophageal reflux disease [Not Recovered/Not Resolved]
  - Dysphagia [Not Recovered/Not Resolved]
  - Oesophageal spasm [Not Recovered/Not Resolved]
